FAERS Safety Report 23199082 (Version 2)
Quarter: 2024Q1

REPORT INFORMATION
  Report Type: Spontaneous
  Country: US (occurrence: US)
  Receive Date: 20231117
  Receipt Date: 20240219
  Transmission Date: 20240410
  Serious: No
  Sender: FDA-Public Use
  Company Number: US-Stemline Therapeutics, Inc.-2023ST003396

PATIENT
  Age: 68 Year
  Sex: Female

DRUGS (3)
  1. ORSERDU [Suspect]
     Active Substance: ELACESTRANT
     Indication: Product used for unknown indication
     Route: 048
     Dates: start: 20230831
  2. ORSERDU [Suspect]
     Active Substance: ELACESTRANT
     Dosage: 345 MG ONCE A DAY
     Route: 048
     Dates: start: 20230831
  3. ORSERDU [Suspect]
     Active Substance: ELACESTRANT
     Dosage: 345 MG, ORAL, ONCE DAILY
     Route: 048
     Dates: start: 202308

REACTIONS (13)
  - Dry skin [Unknown]
  - Energy increased [Unknown]
  - Therapy responder [Unknown]
  - Asthenopia [Unknown]
  - Malaise [Unknown]
  - Loss of personal independence in daily activities [Unknown]
  - Asthenia [Unknown]
  - Hot flush [Unknown]
  - Headache [Unknown]
  - Fatigue [Not Recovered/Not Resolved]
  - Arthralgia [Unknown]
  - Insomnia [Not Recovered/Not Resolved]
  - Dizziness [Unknown]
